FAERS Safety Report 6644387-8 (Version None)
Quarter: 2010Q1

REPORT INFORMATION
  Report Type: 
  Country: None (occurrence: None)
  Receive Date: 20100322
  Receipt Date: 20100318
  Transmission Date: 20100710
  Serious: Yes (Hospitalization)
  Sender: FDA-Public Use
  Company Number: NL-ROCHE-678029

PATIENT
  Sex: Female
  Weight: 70 kg

DRUGS (5)
  1. TOCILIZUMAB [Suspect]
     Indication: RHEUMATOID ARTHRITIS
     Dosage: LAST DOSE PRIOR TO SAE: 04 JANUARY 2010.
     Route: 042
     Dates: start: 20090323, end: 20100105
  2. PREDNISOLONE [Concomitant]
     Dosage: FREQUENCY: 1XDD.
     Route: 048
     Dates: start: 20080702, end: 20091202
  3. PREDNISOLONE [Concomitant]
     Dosage: FREQUENCY: 1 X.
     Route: 048
     Dates: start: 20091202, end: 20100106
  4. KENACORT [Concomitant]
     Dosage: FREQUENCY: 1 X. ROUTE: IM.
     Dates: start: 20090520, end: 20090520
  5. KENACORT [Concomitant]
     Dosage: FREQUENCY: 1 X.  ROUTE: IM.
     Dates: start: 20090629, end: 20090629

REACTIONS (1)
  - ASTHENIA [None]
